FAERS Safety Report 9365645 (Version 7)
Quarter: 2014Q2

REPORT INFORMATION
  Report Type: Report from Study
  Country: CA (occurrence: CA)
  Receive Date: 20130625
  Receipt Date: 20140527
  Transmission Date: 20141212
  Serious: Yes (Hospitalization, Other)
  Sender: FDA-Public Use
  Company Number: CA-ROCHE-1241102

PATIENT
  Age: 67 Year
  Sex: Male
  Weight: 79.4 kg

DRUGS (3)
  1. RANIBIZUMAB [Suspect]
     Indication: AGE-RELATED MACULAR DEGENERATION
     Route: 050
     Dates: start: 20121206
  2. RANIBIZUMAB [Suspect]
     Route: 050
     Dates: start: 20130411
  3. RANIBIZUMAB [Suspect]
     Route: 050
     Dates: start: 20110715

REACTIONS (5)
  - Lymphoma [Unknown]
  - Prostate cancer metastatic [Not Recovered/Not Resolved]
  - Metastases to bone [Unknown]
  - Constipation [Unknown]
  - Nausea [Unknown]
